FAERS Safety Report 8352803-9 (Version None)
Quarter: 2012Q2

REPORT INFORMATION
  Report Type: 
  Country: None (occurrence: None)
  Receive Date: 20120511
  Receipt Date: 20120502
  Transmission Date: 20120825
  Serious: Yes (Other)
  Sender: FDA-Public Use
  Company Number: US-SANOFI-AVENTIS-2012SA031174

PATIENT
  Sex: Female

DRUGS (3)
  1. ALLEGRA-D 12 HOUR [Suspect]
  2. ALLEGRA-D 12 HOUR [Suspect]
     Route: 048
     Dates: start: 20110301
  3. CALCIUM [Concomitant]

REACTIONS (1)
  - LOSS OF CONSCIOUSNESS [None]
